FAERS Safety Report 7483859-3 (Version None)
Quarter: 2011Q2

REPORT INFORMATION
  Report Type: 
  Country: None (occurrence: None)
  Receive Date: 20110517
  Receipt Date: 20110428
  Transmission Date: 20111010
  Serious: No
  Sender: FDA-Public Use
  Company Number: US-B.I. PHARMACEUTICALS,INC./RIDGEFIELD-2011-BP-08484BP

PATIENT
  Sex: Female

DRUGS (15)
  1. PRADAXA [Suspect]
     Indication: ATRIAL FIBRILLATION
     Dosage: 300 MG
     Route: 048
     Dates: start: 20101101
  2. MULTAQ [Suspect]
     Indication: ATRIAL FIBRILLATION
  3. SENEX [Concomitant]
  4. CRESTOR [Concomitant]
     Indication: BLOOD CHOLESTEROL INCREASED
  5. D-3 [Concomitant]
  6. I-CAPS [Concomitant]
     Indication: MACULAR DEGENERATION
  7. LOPRESSOR [Concomitant]
  8. GUANFACINE HYDROCHLORIDE [Concomitant]
     Indication: HYPERTENSION
  9. LISINOPRIL [Concomitant]
  10. VITAMIN B-12 [Concomitant]
  11. MAGNESIUM OXIDE [Suspect]
     Indication: PROPHYLAXIS
  12. VITAMINS [Concomitant]
     Indication: PROPHYLAXIS
  13. KLOR-CON [Concomitant]
  14. METOPROLOL SUCCINATE [Concomitant]
     Indication: HYPERTENSION
  15. LASIX [Concomitant]

REACTIONS (4)
  - OCULAR HYPERAEMIA [None]
  - HAEMATOCHEZIA [None]
  - OEDEMA PERIPHERAL [None]
  - DIARRHOEA [None]
